FAERS Safety Report 23488647 (Version 1)
Quarter: 2024Q1

REPORT INFORMATION
  Report Type: Spontaneous
  Country: BR (occurrence: BR)
  Receive Date: 20240206
  Receipt Date: 20240206
  Transmission Date: 20240410
  Serious: Yes (Hospitalization)
  Sender: FDA-Public Use
  Company Number: BR-SA-2023SA228394

PATIENT
  Sex: Male

DRUGS (1)
  1. SABRIL [Suspect]
     Active Substance: VIGABATRIN
     Indication: Product used for unknown indication
     Dosage: UNK

REACTIONS (5)
  - Electroencephalogram abnormal [Unknown]
  - Surgery [Unknown]
  - Developmental regression [Unknown]
  - Developmental delay [Unknown]
  - Poor quality product administered [Unknown]
